FAERS Safety Report 15822980 (Version 1)
Quarter: 2019Q1

REPORT INFORMATION
  Report Type: Spontaneous
  Country: FR (occurrence: FR)
  Receive Date: 20190114
  Receipt Date: 20190114
  Transmission Date: 20190417
  Serious: Yes (Other)
  Sender: FDA-Public Use
  Company Number: FR-ABBVIE-19K-056-2623825-00

PATIENT
  Age: 64 Year
  Sex: Male
  Weight: 78 kg

DRUGS (10)
  1. METHOTREXATE. [Suspect]
     Active Substance: METHOTREXATE
     Route: 058
     Dates: start: 201503, end: 20170706
  2. HUMIRA [Suspect]
     Active Substance: ADALIMUMAB
     Route: 058
     Dates: start: 201409, end: 201409
  3. REMICADE [Suspect]
     Active Substance: INFLIXIMAB
     Dosage: 100 MG, POUDRE POUR SOLUTION A DILUER POUR PERFUSION
     Route: 042
     Dates: start: 20141120, end: 20170706
  4. PENTASA [Suspect]
     Active Substance: MESALAMINE
     Indication: COLITIS
     Route: 058
     Dates: start: 201409, end: 201409
  5. HUMIRA [Suspect]
     Active Substance: ADALIMUMAB
     Indication: COLITIS
     Route: 058
     Dates: start: 201409, end: 201409
  6. PENTASA [Suspect]
     Active Substance: MESALAMINE
     Route: 048
     Dates: start: 20141120, end: 20170706
  7. REMICADE [Suspect]
     Active Substance: INFLIXIMAB
     Indication: COLITIS
     Route: 058
     Dates: start: 201409, end: 201409
  8. SOLU-MEDROL [Concomitant]
     Active Substance: METHYLPREDNISOLONE SODIUM SUCCINATE
     Indication: PRODUCT USED FOR UNKNOWN INDICATION
  9. METHOTREXATE. [Suspect]
     Active Substance: METHOTREXATE
     Indication: COLITIS
     Route: 058
     Dates: start: 201409, end: 201409
  10. IMUREL [Suspect]
     Active Substance: AZATHIOPRINE SODIUM
     Indication: COLITIS
     Route: 048
     Dates: start: 201409, end: 201409

REACTIONS (1)
  - Epilepsy [Recovered/Resolved]

NARRATIVE: CASE EVENT DATE: 2015
